FAERS Safety Report 8094280-1 (Version None)
Quarter: 2012Q1

REPORT INFORMATION
  Report Type: 
  Country: None (occurrence: None)
  Receive Date: 20120130
  Receipt Date: 20120127
  Transmission Date: 20120608
  Serious: Yes (Hospitalization)
  Sender: FDA-Public Use
  Company Number: DE-SHIRE-SPV1-2012-00079

PATIENT
  Sex: Male
  Weight: 87 kg

DRUGS (2)
  1. MESALAMINE [Suspect]
     Indication: COLITIS ULCERATIVE
     Dosage: 1200 MG, 2X/DAY:BID
     Route: 048
     Dates: start: 20090203
  2. AZATHIOPRINE [Concomitant]
     Indication: COLITIS ULCERATIVE
     Dosage: 200 MG, UNKNOWN
     Route: 065
     Dates: start: 20070101

REACTIONS (1)
  - RECTAL CANCER [None]
